FAERS Safety Report 7224991-9 (Version None)
Quarter: 2010Q4

REPORT INFORMATION
  Report Type: 
  Country: None (occurrence: None)
  Receive Date: 20101227
  Receipt Date: 20101217
  Transmission Date: 20110411
  Serious: No
  Sender: FDA-Public Use
  Company Number: CA-144957

PATIENT
  Sex: Female
  Weight: 108 kg

DRUGS (5)
  1. WINRHO [Suspect]
     Indication: IDIOPATHIC THROMBOCYTOPENIC PURPURA
     Dosage: (37.02 ?G/KG INTRAVENOUS), (13.88 ?G/KG INTRAVENOUS)
     Route: 042
     Dates: start: 20100407, end: 20100407
  2. WINRHO [Suspect]
  3. ENALAPRIL [Concomitant]
  4. AMLODIPINE [Concomitant]
  5. ATORVASTATIN CALCIUM [Concomitant]

REACTIONS (6)
  - BLOOD PRESSURE FLUCTUATION [None]
  - CHILLS [None]
  - HAEMOGLOBIN DECREASED [None]
  - HEADACHE [None]
  - NECK PAIN [None]
  - PAIN IN EXTREMITY [None]
